FAERS Safety Report 14240612 (Version 3)
Quarter: 2018Q3

REPORT INFORMATION
  Report Type: Spontaneous
  Country: JP (occurrence: JP)
  Receive Date: 20171130
  Receipt Date: 20180702
  Transmission Date: 20181010
  Serious: Yes (Death)
  Sender: FDA-Public Use
  Company Number: JP-CELGENEUS-JPN-20171108156

PATIENT
  Age: 83 Year
  Sex: Female
  Weight: 50 kg

DRUGS (5)
  1. REVLIMID [Suspect]
     Active Substance: LENALIDOMIDE
     Indication: 5Q MINUS SYNDROME
     Dosage: 5 MILLIGRAM
     Route: 048
     Dates: start: 20171110, end: 201711
  2. CALONAL [Concomitant]
     Active Substance: ACETAMINOPHEN
     Indication: SPINAL COLUMN STENOSIS
     Dosage: 500 MILLIGRAM
     Route: 048
     Dates: start: 20171017, end: 201711
  3. EDIROL [Concomitant]
     Active Substance: ELDECALCITOL
     Indication: SPINAL COLUMN STENOSIS
     Dosage: .75 MICROGRAM
     Route: 048
     Dates: end: 201711
  4. NESP [Concomitant]
     Active Substance: DARBEPOETIN ALFA
     Indication: 5Q MINUS SYNDROME
     Dosage: UNKNOWN
     Route: 065
     Dates: start: 20170721
  5. AZELNIDIPINE [Concomitant]
     Active Substance: AZELNIDIPINE
     Indication: AORTIC DISSECTION
     Dosage: 16 MILLIGRAM
     Route: 048
     Dates: end: 201711

REACTIONS (1)
  - Arrhythmia [Fatal]

NARRATIVE: CASE EVENT DATE: 20171118
